FAERS Safety Report 9639437 (Version 1)
Quarter: 2013Q4

REPORT INFORMATION
  Report Type: Spontaneous
  Country: US (occurrence: US)
  Receive Date: 20131022
  Receipt Date: 20131022
  Transmission Date: 20140711
  Serious: Yes (Hospitalization)
  Sender: FDA-Public Use
  Company Number: US-JNJFOC-20131005628

PATIENT
  Sex: Female

DRUGS (14)
  1. TYLENOL ANALGESIC UNKNOWN [Suspect]
     Route: 048
  2. TYLENOL ANALGESIC UNKNOWN [Suspect]
     Indication: PREMEDICATION
     Route: 048
  3. BENADRYL [Suspect]
     Route: 042
  4. BENADRYL [Suspect]
     Indication: PREMEDICATION
     Route: 042
  5. SOLUCORTEF [Suspect]
     Indication: PREMEDICATION
     Route: 042
  6. REMICADE [Concomitant]
     Indication: CROHN^S DISEASE
     Route: 042
  7. ADVAIR [Concomitant]
     Indication: PRODUCT USED FOR UNKNOWN INDICATION
     Route: 065
  8. PREDNISONE [Concomitant]
     Indication: PRODUCT USED FOR UNKNOWN INDICATION
  9. METOPROLOL [Concomitant]
  10. COUMADIN [Concomitant]
     Indication: PRODUCT USED FOR UNKNOWN INDICATION
  11. PRAVASTATIN [Concomitant]
     Indication: PRODUCT USED FOR UNKNOWN INDICATION
  12. INSULIN [Concomitant]
     Indication: PRODUCT USED FOR UNKNOWN INDICATION
  13. PHENERGAN [Concomitant]
     Indication: PRODUCT USED FOR UNKNOWN INDICATION
  14. REMICADE [Concomitant]

REACTIONS (4)
  - Crohn^s disease [Unknown]
  - Dehydration [Unknown]
  - Off label use [Unknown]
  - Somnolence [Unknown]
